FAERS Safety Report 21298332 (Version 1)
Quarter: 2022Q3

REPORT INFORMATION
  Report Type: Spontaneous
  Country: US (occurrence: None)
  Receive Date: 20220902
  Receipt Date: 20220902
  Transmission Date: 20221027
  Serious: No
  Sender: FDA-Public Use
  Company Number: None

PATIENT
  Age: 35 Year
  Sex: Female
  Weight: 60.75 kg

DRUGS (6)
  1. NURTEC ODT [Suspect]
     Active Substance: RIMEGEPANT SULFATE
     Indication: Migraine
     Dosage: OTHER QUANTITY : 1 TABLET(S);?FREQUENCY : AS NEEDED;?
     Route: 060
     Dates: start: 20220830
  2. TOPAMAX [Concomitant]
     Active Substance: TOPIRAMATE
  3. SPIRONOLACTONE [Concomitant]
  4. ATARAX [Concomitant]
     Active Substance: HYDROXYZINE HYDROCHLORIDE
  5. Wellbutrin XL Buspar [Concomitant]
  6. VITAMIN D3 [Concomitant]
     Active Substance: CHOLECALCIFEROL

REACTIONS (3)
  - Pruritus [None]
  - Burning sensation [None]
  - Paraesthesia [None]

NARRATIVE: CASE EVENT DATE: 20220902
